FAERS Safety Report 21913791 (Version 1)
Quarter: 2023Q1

REPORT INFORMATION
  Report Type: Spontaneous
  Country: US (occurrence: US)
  Receive Date: 20230125
  Receipt Date: 20230125
  Transmission Date: 20230418
  Serious: No
  Sender: FDA-Public Use
  Company Number: US-ALLERGAN-2220030US

PATIENT

DRUGS (1)
  1. BOTOX [Suspect]
     Active Substance: ONABOTULINUMTOXINA
     Indication: Maxillofacial pain
     Dosage: UNK, SINGLE

REACTIONS (4)
  - Off label use [Unknown]
  - Multiple use of single-use product [Unknown]
  - Product preparation issue [Unknown]
  - Drug ineffective [Unknown]
